FAERS Safety Report 6359617-X (Version None)
Quarter: 2009Q3

REPORT INFORMATION
  Report Type: 
  Country: None (occurrence: None)
  Receive Date: 20090917
  Receipt Date: 20090915
  Transmission Date: 20100115
  Serious: Yes (Hospitalization)
  Sender: FDA-Public Use
  Company Number: US-ELI_LILLY_AND_COMPANY-US200909003337

PATIENT
  Sex: Male

DRUGS (3)
  1. HUMALOG MIX 75/25 [Suspect]
     Dosage: UNK, UNK
  2. HUMULIN 70/30 [Suspect]
     Dosage: 30 U, EACH MORNING
  3. HUMULIN 70/30 [Suspect]
     Dosage: 30 U, EACH EVENING

REACTIONS (8)
  - ANGINA PECTORIS [None]
  - BLOOD GLUCOSE DECREASED [None]
  - BLOOD GLUCOSE INCREASED [None]
  - DYSPEPSIA [None]
  - FEELING ABNORMAL [None]
  - LIMB INJURY [None]
  - TOE AMPUTATION [None]
  - WRONG TECHNIQUE IN DRUG USAGE PROCESS [None]
